FAERS Safety Report 6188759-7 (Version None)
Quarter: 2009Q2

REPORT INFORMATION
  Report Type: 
  Country: None (occurrence: None)
  Receive Date: 20090513
  Receipt Date: 20090505
  Transmission Date: 20091009
  Serious: Yes (Life-Threatening, Other)
  Sender: FDA-Public Use
  Company Number: FR-CELGENEUS-056-21880-09041871

PATIENT
  Sex: Male

DRUGS (3)
  1. REVLIMID [Suspect]
     Route: 048
     Dates: start: 20090211, end: 20090418
  2. REVLIMID [Suspect]
     Route: 048
  3. CORTICOSTEROIDS [Concomitant]
     Indication: DRUG USE FOR UNKNOWN INDICATION
     Route: 065

REACTIONS (4)
  - ANGIOEDEMA [None]
  - DYSPNOEA [None]
  - HAEMOGLOBIN DECREASED [None]
  - RASH ERYTHEMATOUS [None]
